FAERS Safety Report 13103431 (Version 1)
Quarter: 2017Q1

REPORT INFORMATION
  Report Type: Report from Study
  Country: None (occurrence: BR)
  Receive Date: 20170111
  Receipt Date: 20170111
  Transmission Date: 20170428
  Serious: Yes (Death, Hospitalization, Other)
  Sender: FDA-Public Use
  Company Number: BR-ABBVIE-17K-020-1831890-00

PATIENT
  Age: 59 Year
  Sex: Female

DRUGS (1)
  1. HUMIRA [Suspect]
     Active Substance: ADALIMUMAB
     Indication: CROHN^S DISEASE
     Route: 058
     Dates: start: 20140601

REACTIONS (9)
  - Malaise [Unknown]
  - Cholelithiasis [Unknown]
  - Intestinal obstruction [Fatal]
  - Pain [Unknown]
  - Intestinal perforation [Unknown]
  - Septic shock [Fatal]
  - Gastrointestinal ulcer [Unknown]
  - Crohn^s disease [Fatal]
  - Chronic gastritis [Unknown]

NARRATIVE: CASE EVENT DATE: 20161224
